FAERS Safety Report 16368335 (Version 1)
Quarter: 2019Q2

REPORT INFORMATION
  Report Type: Spontaneous
  Country: NL (occurrence: NL)
  Receive Date: 20190529
  Receipt Date: 20190529
  Transmission Date: 20190711
  Serious: Yes (Other)
  Sender: FDA-Public Use
  Company Number: NL-TEVA-2019-NL-1056139

PATIENT
  Age: 39 Year
  Sex: Female
  Weight: 85 kg

DRUGS (1)
  1. FLUTICASON NEUSSPRAY, 50 ?G/DOSIS (MICROGRAM PER DOSIS) [Suspect]
     Active Substance: FLUTICASONE PROPIONATE
     Indication: EUSTACHIAN TUBE OBSTRUCTION
     Dosage: 1 TIME 2 INHALATIONS
     Dates: start: 20171108, end: 20171109

REACTIONS (2)
  - Syncope [Recovering/Resolving]
  - Balance disorder [Recovering/Resolving]

NARRATIVE: CASE EVENT DATE: 20171108
